FAERS Safety Report 24017410 (Version 1)
Quarter: 2024Q2

REPORT INFORMATION
  Report Type: Spontaneous
  Country: CN (occurrence: CN)
  Receive Date: 20240627
  Receipt Date: 20240627
  Transmission Date: 20240715
  Serious: Yes (Other)
  Sender: FDA-Public Use
  Company Number: CN-ROCHE-10000003727

PATIENT
  Age: 80 Year
  Sex: Male

DRUGS (6)
  1. COLUMVI [Suspect]
     Active Substance: GLOFITAMAB-GXBM
     Indication: Diffuse large B-cell lymphoma
     Route: 065
     Dates: start: 20240110
  2. POLATUZUMAB VEDOTIN [Suspect]
     Active Substance: POLATUZUMAB VEDOTIN
     Indication: Diffuse large B-cell lymphoma
     Dosage: SECOND CYCLE ON 31-JAN-2024, THIRD CYCLE ON 07-MAR-2024, FOURTH CYCLE ON 28-MAR-2024, FIFTH CYCLE ON
     Route: 065
     Dates: start: 20240110
  3. RITUXIMAB [Suspect]
     Active Substance: RITUXIMAB
     Indication: Diffuse large B-cell lymphoma
     Dosage: SECOND CYCLE ON 31-JAN-2024, THIRD CYCLE ON 07-MAR-2024, FOURTH CYCLE ON 28-MAR-2024, FIFTH CYCLE ON
     Route: 065
     Dates: start: 20240110
  4. CYCLOPHOSPHAMIDE [Suspect]
     Active Substance: CYCLOPHOSPHAMIDE
     Indication: Diffuse large B-cell lymphoma
     Dosage: SECOND CYCLE ON 31-JAN-2024, THIRD CYCLE ON 07-MAR-2024, FOURTH CYCLE ON 28-MAR-2024, FIFTH CYCLE ON
     Route: 065
     Dates: start: 20240110
  5. EPIRUBICIN [Suspect]
     Active Substance: EPIRUBICIN
     Indication: Diffuse large B-cell lymphoma
     Dosage: SECOND CYCLE ON 31-JAN-2024, THIRD CYCLE ON 07-MAR-2024, FOURTH CYCLE ON 28-MAR-2024, FIFTH CYCLE ON
     Route: 065
     Dates: start: 20240110
  6. PREDNISONE [Suspect]
     Active Substance: PREDNISONE
     Indication: Diffuse large B-cell lymphoma
     Dosage: SECOND CYCLE ON 31-JAN-2024, THIRD CYCLE ON 07-MAR-2024, FOURTH CYCLE ON 28-MAR-2024, FIFTH CYCLE ON
     Route: 065
     Dates: start: 20240110

REACTIONS (6)
  - White blood cell count decreased [Unknown]
  - Neutrophil count decreased [Unknown]
  - Haemoglobin decreased [Unknown]
  - Platelet count decreased [Unknown]
  - Candida infection [Unknown]
  - Gamma-glutamyltransferase increased [Unknown]
